FAERS Safety Report 23268463 (Version 2)
Quarter: 2023Q4

REPORT INFORMATION
  Report Type: Spontaneous
  Country: US (occurrence: US)
  Receive Date: 20231206
  Receipt Date: 20231206
  Transmission Date: 20240110
  Serious: Yes (Hospitalization)
  Sender: FDA-Public Use
  Company Number: US-MYLANLABS-2023M1127341

PATIENT
  Age: 28 Year
  Sex: Female

DRUGS (6)
  1. METHIMAZOLE [Suspect]
     Active Substance: METHIMAZOLE
     Indication: Graves^ disease
     Dosage: UNK, INITIAL DOSE UNKNOWN (TREATMENT STOPPED DUE TO AGRANULOCYTOSIS)
     Route: 065
  2. METHIMAZOLE [Suspect]
     Active Substance: METHIMAZOLE
     Dosage: UNK, SWITCHED BACK TO THIAMAZOLE WITHOUT A PHYSICIAN^S ADVICE
     Route: 065
  3. METHIMAZOLE [Suspect]
     Active Substance: METHIMAZOLE
     Indication: Graves^ disease
     Dosage: 5 MILLIGRAM, QD (5 MG/TABLET 1 TABLET ONCE DAILY)
     Route: 065
  4. METHIMAZOLE [Suspect]
     Active Substance: METHIMAZOLE
     Dosage: 5 MILLIGRAM, QOD (FOLLOWED BY 1 TABLET EVERY OTHER DAY ON THE THIRD TRIMESTER OF PREGNANCY)
     Route: 065
  5. PROPYLTHIOURACIL [Suspect]
     Active Substance: PROPYLTHIOURACIL
     Indication: Graves^ disease
     Dosage: 1 DOSAGE FORM, TID (50 MG/TABLET 1 TABLET THREE TIMES A DAY)
     Route: 065
  6. LITHIUM [Concomitant]
     Active Substance: LITHIUM
     Indication: Graves^ disease
     Dosage: UNK
     Route: 065

REACTIONS (3)
  - Agranulocytosis [Unknown]
  - Maternal exposure during pregnancy [Recovered/Resolved]
  - Intentional product misuse [Unknown]
